FAERS Safety Report 7665716-2 (Version None)
Quarter: 2011Q3

REPORT INFORMATION
  Report Type: 
  Country: None (occurrence: None)
  Receive Date: 20110806
  Receipt Date: 20110418
  Transmission Date: 20111222
  Serious: No
  Sender: FDA-Public Use
  Company Number: US-ABBOTT-11P-163-0719691-00

PATIENT
  Sex: Female

DRUGS (1)
  1. NIASPAN [Suspect]
     Indication: PRODUCT USED FOR UNKNOWN INDICATION
     Dosage: 1 IN 1 AT BEDTIME
     Route: 048
     Dates: start: 20110301

REACTIONS (4)
  - RASH PAPULAR [None]
  - PARAESTHESIA [None]
  - LIP SWELLING [None]
  - BURNING SENSATION [None]
